FAERS Safety Report 5231307-6 (Version None)
Quarter: 2007Q1

REPORT INFORMATION
  Report Type: 
  Country: None (occurrence: None)
  Receive Date: 20070202
  Receipt Date: 20070124
  Transmission Date: 20070707
  Serious: Yes (Hospitalization)
  Sender: FDA-Public Use
  Company Number: 163-21880-07010082

PATIENT
  Age: 76 Year
  Sex: Female

DRUGS (3)
  1. REVLIMID [Suspect]
     Indication: MYELODYSPLASTIC SYNDROME
     Dosage: 10-5 MG, 1 IN 1 D, ORAL
     Route: 048
     Dates: start: 20060901
  2. BLOOD TRANSFUSION (BLOOD TRANSFUSION, AUXILLARY PRODUCTS) [Concomitant]
  3. RED BLOOD CELLS [Concomitant]

REACTIONS (7)
  - ANAEMIA [None]
  - ESCHERICHIA URINARY TRACT INFECTION [None]
  - FATIGUE [None]
  - GASTROENTERITIS [None]
  - HYPERGLYCAEMIA [None]
  - HYPOKALAEMIA [None]
  - NEUTROPENIA [None]
